FAERS Safety Report 7570364-9 (Version None)
Quarter: 2011Q2

REPORT INFORMATION
  Report Type: 
  Country: None (occurrence: None)
  Receive Date: 20110622
  Receipt Date: 20110622
  Transmission Date: 20111010
  Serious: No
  Sender: FDA-Public Use
  Company Number: None

PATIENT
  Age: 61 Year
  Sex: Male
  Weight: 77 kg

DRUGS (2)
  1. CARDIOPLEGIA BASE SOLUTION IN PLASTIC CONTAINER [Suspect]
     Indication: RENAL DISORDER
     Dates: start: 20110504, end: 20110504
  2. CARDIOPLEGIA BASE SOLUTION IN PLASTIC CONTAINER [Suspect]
     Indication: PROPHYLAXIS
     Dates: start: 20110504, end: 20110504

REACTIONS (2)
  - INTERCEPTED MEDICATION ERROR [None]
  - PRODUCT LABEL ON WRONG PRODUCT [None]
